FAERS Safety Report 10053083 (Version 1)
Quarter: 2014Q2

REPORT INFORMATION
  Report Type: Spontaneous
  Country: GB (occurrence: GB)
  Receive Date: 20140402
  Receipt Date: 20140402
  Transmission Date: 20141212
  Serious: Yes (Hospitalization)
  Sender: FDA-Public Use
  Company Number: PHHY2014GB035672

PATIENT
  Age: 53 Year
  Sex: Female

DRUGS (7)
  1. AMOXICILLIN [Suspect]
     Indication: LOWER RESPIRATORY TRACT INFECTION
     Dosage: 500 MG, TID
     Route: 048
     Dates: start: 20130807, end: 20130814
  2. GENTAMICIN [Suspect]
     Indication: LOWER RESPIRATORY TRACT INFECTION
     Dosage: 250 MG, QD
     Route: 042
     Dates: start: 20130916, end: 20130929
  3. OMEPRAZOLE [Suspect]
     Indication: GASTRITIS
     Dosage: 20 MG, QD
     Route: 048
     Dates: end: 20130930
  4. TAZOCIN [Suspect]
     Indication: CHRONIC OBSTRUCTIVE PULMONARY DISEASE
     Dosage: 4.5 G, TID
     Route: 042
     Dates: start: 20130914, end: 20130925
  5. CIPROFLOXACIN [Concomitant]
     Dates: start: 201307
  6. OPIAT [Concomitant]
     Indication: BACK PAIN
  7. LAXATIVE [Concomitant]
     Indication: CONSTIPATION

REACTIONS (1)
  - Clostridium difficile infection [Recovered/Resolved]
